FAERS Safety Report 7302277-1 (Version None)
Quarter: 2011Q1

REPORT INFORMATION
  Report Type: 
  Country: None (occurrence: None)
  Receive Date: 20110208
  Receipt Date: 20110106
  Transmission Date: 20110831
  Serious: Yes (Hospitalization, Other)
  Sender: FDA-Public Use
  Company Number: OTC-2011-00001

PATIENT
  Age: 35 Year
  Sex: Female
  Weight: 81.6475 kg

DRUGS (1)
  1. NEUTROGENA ON-THE-SPOT ACNE TREATMENT, BPO 2.5% [Suspect]
     Indication: ACNE
     Dosage: 1 X, TOPICAL
     Route: 061
     Dates: start: 20101231, end: 20101231

REACTIONS (3)
  - URTICARIA [None]
  - DYSPHAGIA [None]
  - THROAT TIGHTNESS [None]
